FAERS Safety Report 17954387 (Version 2)
Quarter: 2020Q3

REPORT INFORMATION
  Report Type: Spontaneous
  Country: CZ (occurrence: CZ)
  Receive Date: 20200629
  Receipt Date: 20200710
  Transmission Date: 20201103
  Serious: Yes (Other)
  Sender: FDA-Public Use
  Company Number: CZ-AUROBINDO-AUR-APL-2020-025891

PATIENT
  Age: 40 Year
  Sex: Female

DRUGS (6)
  1. ALPRAZOLAM. [Suspect]
     Active Substance: ALPRAZOLAM
     Indication: PRODUCT USED FOR UNKNOWN INDICATION
     Dosage: UNK, DID NOT TAKE REGULARLY
     Route: 048
  2. TRAMADOL. [Suspect]
     Active Substance: TRAMADOL
     Indication: EPILEPSY
     Dosage: 750 MILLIGRAM, ONCE A DAY
     Route: 065
  3. CLONAZEPAM. [Suspect]
     Active Substance: CLONAZEPAM
     Indication: PRODUCT USED FOR UNKNOWN INDICATION
     Dosage: UNK, DID NOT TAKE REGULARLY
     Route: 065
  4. ALCOHOL. [Suspect]
     Active Substance: ALCOHOL
     Indication: PRODUCT USED FOR UNKNOWN INDICATION
     Dosage: 2 LITER, ONCE A DAY
     Route: 065
  5. TRAMADOL. [Suspect]
     Active Substance: TRAMADOL
     Indication: BACK PAIN
     Dosage: 2000 MILLIGRAM, ONCE A DAY
     Route: 048
  6. TRAMADOL. [Suspect]
     Active Substance: TRAMADOL
     Indication: BACK PAIN
     Dosage: 40 DOSAGE FORM, ONCE A DAY
     Route: 048
     Dates: start: 2005

REACTIONS (23)
  - Substance dependence [Unknown]
  - Anxiety [Recovered/Resolved]
  - Insomnia [Recovered/Resolved]
  - Live birth [Unknown]
  - Depression [Unknown]
  - Withdrawal syndrome [Recovered/Resolved]
  - Muscle spasms [Recovered/Resolved]
  - Personality disorder [Unknown]
  - Overdose [Recovered/Resolved]
  - Contraindicated product administered [Recovered/Resolved]
  - Amnesia [Unknown]
  - Drug abuse [Recovered/Resolved]
  - Drug dependence [Unknown]
  - Feeling of body temperature change [Unknown]
  - Maternal exposure during pregnancy [Unknown]
  - Pain [Recovered/Resolved]
  - Disturbance in attention [Recovered/Resolved]
  - Memory impairment [Recovered/Resolved]
  - Epilepsy [Unknown]
  - Mood altered [Recovered/Resolved]
  - Chills [Recovered/Resolved]
  - Hyperhidrosis [Recovered/Resolved]
  - Tension [Recovered/Resolved]
